FAERS Safety Report 21912008 (Version 1)
Quarter: 2023Q1

REPORT INFORMATION
  Report Type: Spontaneous
  Country: US (occurrence: US)
  Receive Date: 20230125
  Receipt Date: 20230125
  Transmission Date: 20230417
  Serious: No
  Sender: FDA-Public Use
  Company Number: US-ALLERGAN-2232609US

PATIENT
  Sex: Female

DRUGS (6)
  1. BOTOX COSMETIC [Suspect]
     Active Substance: ONABOTULINUMTOXINA
     Indication: Skin wrinkling
     Dosage: 20 UNITS, SINGLE
     Dates: start: 20220920, end: 20220920
  2. BOTOX COSMETIC [Suspect]
     Active Substance: ONABOTULINUMTOXINA
     Indication: Skin wrinkling
     Dosage: 16 UNITS, SINGLE
     Dates: start: 20220920, end: 20220920
  3. BOTOX COSMETIC [Suspect]
     Active Substance: ONABOTULINUMTOXINA
     Indication: Skin wrinkling
     Dosage: 12 UNITS, SINGLE
  4. JUVEDERM VOLUMA XC [Suspect]
     Active Substance: HYALURONIC ACID\LIDOCAINE HYDROCHLORIDE
     Dosage: 2 CC
     Dates: start: 20220920, end: 20220920
  5. JUVEDERM VOLUMA XC [Suspect]
     Active Substance: HYALURONIC ACID\LIDOCAINE HYDROCHLORIDE
     Dosage: 15 CC
     Dates: start: 20220920, end: 20220920
  6. JUVEDERM [Suspect]
     Active Substance: HYALURONIC ACID
     Dosage: 0.6CC
     Dates: start: 20220920, end: 20220920

REACTIONS (4)
  - Skin disorder [Unknown]
  - Injection site bruising [Unknown]
  - Injection site erythema [Unknown]
  - Injection site pain [Unknown]

NARRATIVE: CASE EVENT DATE: 20220926
